FAERS Safety Report 6899911-7 (Version None)
Quarter: 2010Q3

REPORT INFORMATION
  Report Type: 
  Country: None (occurrence: None)
  Receive Date: 20100708
  Receipt Date: 20100506
  Transmission Date: 20110219
  Serious: Yes (Other)
  Sender: FDA-Public Use
  Company Number: 2010057534

PATIENT
  Age: 44 Year
  Sex: Female
  Weight: 68 kg

DRUGS (3)
  1. CHANTIX [Suspect]
     Indication: SMOKING CESSATION THERAPY
     Dosage: 1 MG, 2X/DAY, ORAL; 0.5 MG, 1X/DAY, ORAL
     Route: 048
     Dates: start: 20100101, end: 20100101
  2. CHANTIX [Suspect]
     Indication: SMOKING CESSATION THERAPY
     Dosage: 1 MG, 2X/DAY, ORAL; 0.5 MG, 1X/DAY, ORAL
     Route: 048
     Dates: start: 20100301, end: 20100101
  3. AMOXICILLIN [Suspect]
     Dates: start: 20100101, end: 20100101

REACTIONS (6)
  - ANXIETY [None]
  - FEELING ABNORMAL [None]
  - FEELING JITTERY [None]
  - INSOMNIA [None]
  - MALAISE [None]
  - PARANOIA [None]
